FAERS Safety Report 24885757 (Version 2)
Quarter: 2025Q1

REPORT INFORMATION
  Report Type: Spontaneous
  Country: JP (occurrence: JP)
  Receive Date: 20250125
  Receipt Date: 20250310
  Transmission Date: 20250408
  Serious: Yes (Hospitalization)
  Sender: ABBVIE
  Company Number: JP-ABBVIE-5945710

PATIENT
  Age: 80 Year
  Sex: Female
  Weight: 39 kg

DRUGS (2)
  1. RINVOQ [Suspect]
     Active Substance: UPADACITINIB
     Indication: Rheumatoid arthritis
     Dosage: FORM STRENGTH: 15 MILLIGRAM
     Route: 048
     Dates: start: 20221012, end: 20250120
  2. METHOTREXATE [Suspect]
     Active Substance: METHOTREXATE
     Indication: Rheumatoid arthritis
     Dosage: 4 MG AND 2 MG ONCE WEEKLY (6 MG/WEEK TOTAL)
     Route: 048
     Dates: start: 202206

REACTIONS (4)
  - Herpes zoster meningoencephalitis [Recovered/Resolved]
  - Pyrexia [Unknown]
  - Fall [Unknown]
  - Asthenia [Unknown]

NARRATIVE: CASE EVENT DATE: 20240125
